FAERS Safety Report 4455263-3 (Version None)
Quarter: 2004Q3

REPORT INFORMATION
  Report Type: 
  Country: None (occurrence: None)
  Receive Date: 20040921
  Receipt Date: 20040910
  Transmission Date: 20050211
  Serious: Yes (Death)
  Sender: FDA-Public Use
  Company Number: CO-MERCK-0409COL00008

PATIENT

DRUGS (1)
  1. CANCIDAS [Suspect]
     Indication: CANDIDIASIS
     Route: 051

REACTIONS (2)
  - CANDIDIASIS [None]
  - DRUG RESISTANCE [None]
